FAERS Safety Report 5141962-7 (Version None)
Quarter: 2006Q4

REPORT INFORMATION
  Report Type: 
  Country: None (occurrence: None)
  Receive Date: 20061102
  Receipt Date: 20060922
  Transmission Date: 20070319
  Serious: Yes (Death, Hospitalization, Other)
  Sender: FDA-Public Use
  Company Number: PHBS2006JP14843

PATIENT
  Age: 81 Year
  Sex: Male
  Weight: 64 kg

DRUGS (11)
  1. NEO DOPASTON [Concomitant]
     Indication: PARKINSON'S DISEASE
     Dosage: 350 MG/DAY
     Route: 048
     Dates: start: 20030404
  2. DROXIDOPA [Concomitant]
     Indication: PARKINSON'S DISEASE
     Dosage: 300 MG, UNK
     Route: 048
     Dates: start: 20030522
  3. ARTANE [Concomitant]
     Indication: PARKINSON'S DISEASE
     Dosage: 2 MG, UNK
     Route: 048
     Dates: start: 20030404
  4. FP [Concomitant]
     Indication: PARKINSON'S DISEASE
     Dosage: 5 MG, UNK
     Route: 048
     Dates: start: 20040701
  5. LASIX [Concomitant]
     Indication: OEDEMA PERIPHERAL
     Dosage: 20 MG, UNK
     Route: 048
     Dates: start: 20030626
  6. ALDACTONE [Concomitant]
     Indication: OEDEMA PERIPHERAL
     Dosage: 25 MG, UNK
     Route: 048
     Dates: start: 20030626
  7. MEXITIL [Concomitant]
     Indication: ARRHYTHMIA
     Dosage: 200 MG, UNK
     Route: 048
     Dates: start: 20040930
  8. KAMAG G [Concomitant]
     Dosage: 3 G, UNK
     Route: 048
     Dates: start: 20030404
  9. SOLANAX [Concomitant]
     Dosage: 1.2 MG, UNK
     Route: 048
     Dates: start: 20030404
  10. PARLODEL [Suspect]
     Indication: PARKINSON'S DISEASE
     Dosage: 20 MG/DAY
     Route: 048
     Dates: start: 20030404, end: 20060923
  11. PARLODEL [Suspect]
     Route: 048
     Dates: start: 20060924, end: 20061005

REACTIONS (20)
  - ACUTE RESPIRATORY FAILURE [None]
  - AORTIC VALVE INCOMPETENCE [None]
  - C-REACTIVE PROTEIN INCREASED [None]
  - CARDIAC VALVE DISEASE [None]
  - CHEST X-RAY ABNORMAL [None]
  - DILATATION ATRIAL [None]
  - DYSPNOEA [None]
  - ECHOCARDIOGRAM ABNORMAL [None]
  - EJECTION FRACTION DECREASED [None]
  - HYPERTROPHIC CARDIOMYOPATHY [None]
  - HYPOTENSION [None]
  - MALAISE [None]
  - MITRAL VALVE INCOMPETENCE [None]
  - OEDEMA PERIPHERAL [None]
  - PALPITATIONS [None]
  - PLEURAL EFFUSION [None]
  - PLEURAL HAEMORRHAGE [None]
  - PNEUMONIA ASPIRATION [None]
  - PULMONARY VALVE INCOMPETENCE [None]
  - PYREXIA [None]
